FAERS Safety Report 25728028 (Version 1)
Quarter: 2025Q3

REPORT INFORMATION
  Report Type: Spontaneous
  Country: US (occurrence: None)
  Receive Date: 20250826
  Receipt Date: 20250826
  Transmission Date: 20251020
  Serious: Yes (Hospitalization)
  Sender: FDA-CTU
  Company Number: None

PATIENT
  Sex: Female

DRUGS (2)
  1. IOPAMIDOL [Suspect]
     Active Substance: IOPAMIDOL
  2. VANCOMYCIN [Suspect]
     Active Substance: VANCOMYCIN

REACTIONS (2)
  - Acute kidney injury [None]
  - Procedural haemorrhage [None]

NARRATIVE: CASE EVENT DATE: 20240125
